FAERS Safety Report 4806852-5 (Version None)
Quarter: 2005Q4

REPORT INFORMATION
  Report Type: 
  Country: None (occurrence: None)
  Receive Date: 20051019
  Receipt Date: 20051005
  Transmission Date: 20060501
  Serious: Yes (Other)
  Sender: FDA-Public Use
  Company Number: S05-CAN-03791-01

PATIENT
  Age: 57 Year
  Sex: Male

DRUGS (3)
  1. CELEXA [Suspect]
     Dosage: 40 MG QD PO
     Route: 048
  2. ATIVAN [Concomitant]
  3. PIPORTIL LONGUM-4 (PIPOTIAZINE PALMITATE) [Concomitant]

REACTIONS (6)
  - AGITATION [None]
  - CONFUSIONAL STATE [None]
  - FEAR [None]
  - HYPONATRAEMIA [None]
  - INSOMNIA [None]
  - MALAISE [None]
